FAERS Safety Report 5161617-2 (Version None)
Quarter: 2006Q4

REPORT INFORMATION
  Report Type: 
  Country: None (occurrence: None)
  Receive Date: 20061130
  Receipt Date: 20051206
  Transmission Date: 20070319
  Serious: No
  Sender: FDA-Public Use
  Company Number: US-BRISTOL-MYERS SQUIBB COMPANY-13205406

PATIENT
  Age: 53 Year
  Sex: Female
  Weight: 69 kg

DRUGS (1)
  1. ETOPOSIDE [Suspect]
     Indication: OVARIAN CANCER
     Dates: start: 20051203

REACTIONS (3)
  - FLUSHING [None]
  - RESTLESSNESS [None]
  - TREMOR [None]
